FAERS Safety Report 10700850 (Version 2)
Quarter: 2015Q1

REPORT INFORMATION
  Report Type: Spontaneous
  Country: US (occurrence: US)
  Receive Date: 20150109
  Receipt Date: 20150127
  Transmission Date: 20150721
  Serious: No
  Sender: FDA-Public Use
  Company Number: US-TEVA-533526USA

PATIENT
  Age: 32 Year
  Sex: Female
  Weight: 64.47 kg

DRUGS (2)
  1. PLAN B ONE-STEP [Suspect]
     Active Substance: LEVONORGESTREL
     Indication: POST COITAL CONTRACEPTION
     Dosage: 1.5 MILLIGRAM DAILY;
     Route: 048
     Dates: start: 20150102, end: 20150102
  2. KLONOPIN [Concomitant]
     Active Substance: CLONAZEPAM
     Indication: ANXIETY

REACTIONS (1)
  - Menstruation irregular [Recovered/Resolved]

NARRATIVE: CASE EVENT DATE: 20150107
